FAERS Safety Report 21016430 (Version 1)
Quarter: 2022Q2

REPORT INFORMATION
  Report Type: Spontaneous
  Country: US (occurrence: None)
  Receive Date: 20220627
  Receipt Date: 20220627
  Transmission Date: 20220721
  Serious: No
  Sender: FDA-Public Use
  Company Number: None

PATIENT
  Sex: Female

DRUGS (1)
  1. TOBRAMYCIN [Suspect]
     Active Substance: TOBRAMYCIN
     Indication: Bronchiectasis
     Dosage: OTHER QUANTITY : 300MG/4ML;?FREQUENCY : TWICE A DAY;?
     Route: 055
     Dates: start: 202102

REACTIONS (1)
  - Infection [None]
